FAERS Safety Report 9345421 (Version 1)
Quarter: 2013Q2

REPORT INFORMATION
  Report Type: Spontaneous
  Country: US (occurrence: US)
  Receive Date: 20130613
  Receipt Date: 20130613
  Transmission Date: 20140414
  Serious: No
  Sender: FDA-Public Use
  Company Number: US-ASTRAZENECA-2013SE40343

PATIENT
  Sex: Male

DRUGS (2)
  1. PULMICORT FLEXHALER [Suspect]
     Indication: EMPHYSEMA
     Dosage: 180 MCG, ONE PUFF BID
     Route: 055
     Dates: start: 20130523
  2. SEVERAL OTHER INHALATION PRODUCTS [Concomitant]

REACTIONS (2)
  - Emotional distress [Unknown]
  - Off label use [Unknown]
